FAERS Safety Report 22284274 (Version 1)
Quarter: 2023Q2

REPORT INFORMATION
  Report Type: Report from Study
  Country: CA (occurrence: CA)
  Receive Date: 20230504
  Receipt Date: 20230504
  Transmission Date: 20230722
  Serious: Yes (Other)
  Sender: FDA-Public Use
  Company Number: CA-JNJFOC-20230303822

PATIENT
  Age: 29 Year
  Sex: Female

DRUGS (1)
  1. SIMPONI [Suspect]
     Active Substance: GOLIMUMAB
     Indication: Rheumatoid arthritis
     Route: 058
     Dates: start: 20150510

REACTIONS (6)
  - Abortion spontaneous [Unknown]
  - Bronchitis [Unknown]
  - Exposure during pregnancy [Recovered/Resolved]
  - Lower respiratory tract infection [Unknown]
  - Nasopharyngitis [Unknown]
  - Influenza [Recovering/Resolving]

NARRATIVE: CASE EVENT DATE: 20230224
